FAERS Safety Report 4802298-4 (Version None)
Quarter: 2005Q4

REPORT INFORMATION
  Report Type: 
  Country: None (occurrence: None)
  Receive Date: 20051012
  Receipt Date: 20051003
  Transmission Date: 20060501
  Serious: Yes (Hospitalization, Other)
  Sender: FDA-Public Use
  Company Number: 2005132600

PATIENT
  Age: 70 Year
  Sex: Male

DRUGS (5)
  1. ZMAX [Suspect]
     Indication: PNEUMONIA
     Dosage: 1 IN 1 D
     Dates: start: 20050829
  2. DEPAKOTE [Concomitant]
  3. ALL OTHER THERAPEUTIC PRODUCTS [Concomitant]
  4. DIPYRIDAMOLE [Concomitant]
  5. DICLOFENAC SODIUM [Concomitant]

REACTIONS (7)
  - ASTHENIA [None]
  - CEREBROVASCULAR ACCIDENT [None]
  - DEHYDRATION [None]
  - DIARRHOEA [None]
  - HYPOTENSION [None]
  - PAIN [None]
  - PHARMACEUTICAL PRODUCT COMPLAINT [None]
